FAERS Safety Report 7111760-3 (Version None)
Quarter: 2010Q4

REPORT INFORMATION
  Report Type: 
  Country: None (occurrence: None)
  Receive Date: 20101118
  Receipt Date: 20101105
  Transmission Date: 20110411
  Serious: Yes (Hospitalization)
  Sender: FDA-Public Use
  Company Number: DE-ELI_LILLY_AND_COMPANY-DE201011001468

PATIENT
  Sex: Male

DRUGS (3)
  1. FORTEO [Suspect]
     Indication: OSTEOPOROSIS
     Dosage: UNK, UNKNOWN
     Route: 058
     Dates: start: 20100507
  2. VOLTAREN                                /SCH/ [Concomitant]
     Dosage: UNK, AS NEEDED
  3. MARCUMAR [Concomitant]

REACTIONS (1)
  - LUMBAR VERTEBRAL FRACTURE [None]
